FAERS Safety Report 10026955 (Version 6)
Quarter: 2014Q2

REPORT INFORMATION
  Report Type: Report from Study
  Country: BE (occurrence: BE)
  Receive Date: 20140321
  Receipt Date: 20140626
  Transmission Date: 20141212
  Serious: Yes (Hospitalization)
  Sender: FDA-Public Use
  Company Number: BE-VERTEX PHARMACEUTICALS INC-2014-001393

PATIENT
  Age: 46 Year
  Sex: Male
  Weight: 85 kg

DRUGS (24)
  1. TELAPREVIR [Suspect]
     Indication: CHRONIC HEPATITIS C
     Dosage: 2250 UNK, UNK
     Route: 065
     Dates: start: 20140210
  2. TELAPREVIR [Suspect]
     Dosage: 2250 UNK, UNK
     Route: 065
     Dates: start: 20140127
  3. TELAPREVIR [Suspect]
     Dosage: 2250 UNK, UNK
     Route: 065
     Dates: start: 20140301
  4. TELAPREVIR [Suspect]
     Dosage: 2250 UNK, UNK
     Route: 065
     Dates: start: 20140322
  5. TELAPREVIR [Suspect]
     Dosage: 2250 UNK, UNK
     Route: 065
     Dates: start: 20140423
  6. TELAPREVIR [Suspect]
     Dosage: UNK
     Route: 065
  7. RIBAVIRIN [Suspect]
     Indication: CHRONIC HEPATITIS C
     Dosage: 1200 MG, UNK
     Route: 065
     Dates: start: 20140210
  8. RIBAVIRIN [Suspect]
     Dosage: 1200 MG, UNK
     Route: 065
     Dates: start: 20140301
  9. RIBAVIRIN [Suspect]
     Dosage: 1200 MG, UNK
     Route: 065
     Dates: start: 20140127
  10. RIBAVIRIN [Suspect]
     Dosage: 1200 MG, UNK
     Route: 065
     Dates: start: 20140322
  11. PEGINTERFERON ALFA [Suspect]
     Indication: CHRONIC HEPATITIS C
     Dosage: 180 ?G, UNK
     Route: 065
     Dates: start: 20140301
  12. PEGINTERFERON ALFA [Suspect]
     Dosage: 180 ?G, UNK
     Route: 065
     Dates: start: 20140127
  13. PEGINTERFERON ALFA [Suspect]
     Dosage: 180 ?G, UNK
     Route: 065
     Dates: start: 20140210
  14. PEGINTERFERON ALFA [Suspect]
     Dosage: 180 ?G, UNK
     Route: 065
     Dates: start: 20140322
  15. PANTOMED [Concomitant]
     Indication: DYSPHAGIA
     Route: 065
     Dates: start: 20090724
  16. DUOVENT [Concomitant]
     Indication: CHRONIC OBSTRUCTIVE PULMONARY DISEASE
     Dosage: UNK
     Route: 065
     Dates: start: 20140315
  17. METHADONE [Concomitant]
     Indication: ELECTROLYTE SUBSTITUTION THERAPY
     Dosage: UNK
     Route: 065
     Dates: start: 20140127
  18. METHADONE [Concomitant]
     Dosage: UNK
     Route: 065
     Dates: start: 2013, end: 20140126
  19. MOVICOL [Concomitant]
     Indication: CONSTIPATION PROPHYLAXIS
     Route: 065
  20. PRIMPERAN [Concomitant]
     Indication: DYSPHAGIA
     Dosage: UNK
     Route: 065
     Dates: start: 20140210, end: 20140315
  21. DAFALGAN FORTE [Concomitant]
     Indication: PAIN
     Route: 065
     Dates: start: 20140301
  22. MEDROL [Concomitant]
     Indication: CHRONIC OBSTRUCTIVE PULMONARY DISEASE
     Route: 065
     Dates: start: 20140301
  23. LYSOMUCIL [Concomitant]
     Indication: CHRONIC OBSTRUCTIVE PULMONARY DISEASE
     Route: 065
     Dates: start: 20140301
  24. INUVAIR [Concomitant]
     Indication: CHRONIC OBSTRUCTIVE PULMONARY DISEASE
     Route: 065
     Dates: start: 20140301

REACTIONS (3)
  - Conversion disorder [Recovered/Resolved]
  - Malaise [Recovered/Resolved]
  - Malaise [Recovered/Resolved]
